FAERS Safety Report 16932390 (Version 2)
Quarter: 2020Q1

REPORT INFORMATION
  Report Type: Spontaneous
  Country: US (occurrence: US)
  Receive Date: 20191017
  Receipt Date: 20200310
  Transmission Date: 20200409
  Serious: Yes (Death)
  Sender: FDA-Public Use
  Company Number: US-TEVA-2019-US-1123087

PATIENT
  Sex: Male

DRUGS (6)
  1. ALLOPURINOL. [Concomitant]
     Active Substance: ALLOPURINOL
  2. FENTORA [Suspect]
     Active Substance: FENTANYL CITRATE
     Indication: CANCER PAIN
     Dosage: 1-2 Q4HR
     Route: 065
  3. OXYCONTIN [Concomitant]
     Active Substance: OXYCODONE HYDROCHLORIDE
  4. MORPHINE IR [Suspect]
     Active Substance: MORPHINE
     Indication: CANCER PAIN
     Route: 065
  5. MORPHINE ER [Suspect]
     Active Substance: MORPHINE
     Indication: CANCER PAIN
     Route: 065
  6. FENTANYL. [Suspect]
     Active Substance: FENTANYL
     Indication: CANCER PAIN
     Dosage: 2 PATCHES EVERY 72 HOURS
     Route: 062

REACTIONS (3)
  - Metastases to bone [Fatal]
  - Metastases to lung [Fatal]
  - Renal cancer metastatic [Fatal]
